FAERS Safety Report 10173363 (Version 1)
Quarter: 2014Q2

REPORT INFORMATION
  Report Type: Spontaneous
  Country: US (occurrence: None)
  Receive Date: 20140415
  Receipt Date: 20140415
  Transmission Date: 20141212
  Serious: Yes (Other)
  Sender: FDA-Public Use
  Company Number: ALL1-2014-00901

PATIENT
  Sex: 0

DRUGS (2)
  1. VYVANSE (LISDEXAMFETAMINE DIMESYLATE) CAPSULE [Suspect]
     Indication: ATTENTION DEFICIT/HYPERACTIVITY DISORDER
     Route: 048
  2. EMSAM [Suspect]
     Indication: MAJOR DEPRESSION
     Route: 062

REACTIONS (1)
  - Tachycardia [None]
